FAERS Safety Report 20054006 (Version 2)
Quarter: 2021Q4

REPORT INFORMATION
  Report Type: Spontaneous
  Country: BR (occurrence: BR)
  Receive Date: 20211110
  Receipt Date: 20211123
  Transmission Date: 20220303
  Serious: Yes (Life-Threatening)
  Sender: FDA-Public Use
  Company Number: None

PATIENT
  Age: 40 Year
  Sex: Male
  Weight: 47 kg

DRUGS (8)
  1. DAPTOMYCIN [Suspect]
     Active Substance: DAPTOMYCIN
  2. SULFAMETHOXAZOLE\TRIMETHOPRIM [Suspect]
     Active Substance: SULFAMETHOXAZOLE\TRIMETHOPRIM
     Indication: Endocarditis staphylococcal
     Dosage: 1480 MILLIGRAM (3 AMPOULES), QD
     Route: 042
     Dates: start: 20190920, end: 20191007
  3. TRAMADOL [Concomitant]
     Active Substance: TRAMADOL
  4. ENOXAPARIN [Concomitant]
     Active Substance: ENOXAPARIN
  5. EPOETIN ALFA [Concomitant]
     Active Substance: ERYTHROPOIETIN
  6. DIPYRONE [Concomitant]
     Active Substance: DIPYRONE
  7. ONDANSETRON HYDROCHLORIDE [Concomitant]
     Active Substance: ONDANSETRON HYDROCHLORIDE
  8. INSULIN NOS [Concomitant]
     Active Substance: INSULIN NOS

REACTIONS (1)
  - Haemolytic anaemia [Recovering/Resolving]

NARRATIVE: CASE EVENT DATE: 20191001
